FAERS Safety Report 12310496 (Version 1)
Quarter: 2016Q2

REPORT INFORMATION
  Report Type: Spontaneous
  Country: US (occurrence: US)
  Receive Date: 20160427
  Receipt Date: 20160427
  Transmission Date: 20160815
  Serious: No
  Sender: FDA-Public Use
  Company Number: US-MYLANLABS-2016M1001820

PATIENT
  Age: 35 Year
  Sex: Female

DRUGS (1)
  1. ACYCLOVIR OINTMENT USP, 5% [Suspect]
     Active Substance: ACYCLOVIR
     Dosage: APPLY PRN
     Route: 061
     Dates: start: 201511, end: 201511

REACTIONS (2)
  - Expired product administered [Recovered/Resolved]
  - No adverse event [Recovered/Resolved]

NARRATIVE: CASE EVENT DATE: 201511
